FAERS Safety Report 6959349-0 (Version None)
Quarter: 2010Q3

REPORT INFORMATION
  Report Type: 
  Country: None (occurrence: None)
  Receive Date: 20100831
  Receipt Date: 20100831
  Transmission Date: 20110219
  Serious: Yes (Life-Threatening, Hospitalization, Other)
  Sender: FDA-Public Use
  Company Number: None

PATIENT
  Sex: Male
  Weight: 93.8946 kg

DRUGS (4)
  1. AMIODARONE HCL [Suspect]
     Indication: ARRHYTHMIA
     Dosage: 200 MG. 2 X PER DAY PO
     Route: 048
     Dates: start: 20080417, end: 20100517
  2. AMIODARONE HCL [Suspect]
     Indication: ATRIAL FIBRILLATION
     Dosage: 200 MG. 2 X PER DAY PO
     Route: 048
     Dates: start: 20080417, end: 20100517
  3. DRONEDARONE HCL [Suspect]
     Indication: ARRHYTHMIA
     Dosage: IN HOSPITAL PO
     Route: 048
     Dates: start: 20100603, end: 20100610
  4. DRONEDARONE HCL [Suspect]
     Indication: ATRIAL FIBRILLATION
     Dosage: IN HOSPITAL PO
     Route: 048
     Dates: start: 20100603, end: 20100610

REACTIONS (26)
  - ARRHYTHMIA [None]
  - ATRIAL FIBRILLATION [None]
  - BLOOD COUNT ABNORMAL [None]
  - CHILLS [None]
  - CONFUSIONAL STATE [None]
  - COUGH [None]
  - DEPRESSION [None]
  - DYSPNOEA [None]
  - EMOTIONAL DISTRESS [None]
  - FATIGUE [None]
  - GASTROINTESTINAL HAEMORRHAGE [None]
  - HEADACHE [None]
  - HYPOAESTHESIA [None]
  - IRRITABILITY [None]
  - MUSCULAR WEAKNESS [None]
  - MYALGIA [None]
  - PARAESTHESIA [None]
  - PHOTOSENSITIVITY REACTION [None]
  - PLEURAL EFFUSION [None]
  - PNEUMONIA [None]
  - PRODUCT QUALITY ISSUE [None]
  - RASH [None]
  - SKIN DISCOLOURATION [None]
  - SLEEP DISORDER [None]
  - TREMOR [None]
  - VISION BLURRED [None]
